FAERS Safety Report 16365597 (Version 2)
Quarter: 2019Q2

REPORT INFORMATION
  Report Type: Other
  Country: DE (occurrence: DE)
  Receive Date: 20190529
  Receipt Date: 20190603
  Transmission Date: 20190711
  Serious: Yes (Hospitalization, Other)
  Sender: FDA-Public Use
  Company Number: DE-AXELLIA-002320

PATIENT
  Age: 77 Year
  Sex: Male

DRUGS (11)
  1. TILIDINE [Concomitant]
     Active Substance: TILIDINE
  2. SIMVASTATIN. [Concomitant]
     Active Substance: SIMVASTATIN
  3. ENALAPRIL [Concomitant]
     Active Substance: ENALAPRIL
  4. ACETYLSALICYLIC ACID [Concomitant]
     Active Substance: ASPIRIN
  5. CITALOPRAM [Concomitant]
     Active Substance: CITALOPRAM HYDROBROMIDE
  6. BISOPROLOL [Concomitant]
     Active Substance: BISOPROLOL
  7. PANTOPRAZOLE [Concomitant]
     Active Substance: PANTOPRAZOLE
  8. METAMIZOLE SODIUM [Concomitant]
     Active Substance: METAMIZOLE SODIUM
  9. VANCOMYCIN [Suspect]
     Active Substance: VANCOMYCIN
     Indication: BACTERIAL INFECTION
     Route: 042
  10. CERTOPARIN SODIUM [Concomitant]
     Active Substance: CERTOPARIN SODIUM
  11. QUETIAPINE/QUETIAPINE FUMARATE [Concomitant]

REACTIONS (2)
  - Drug hypersensitivity [Recovered/Resolved]
  - Linear IgA disease [Recovered/Resolved]
